FAERS Safety Report 7676104-7 (Version None)
Quarter: 2011Q3

REPORT INFORMATION
  Report Type: 
  Country: None (occurrence: None)
  Receive Date: 20110811
  Receipt Date: 20110801
  Transmission Date: 20111222
  Serious: Yes (Hospitalization)
  Sender: FDA-Public Use
  Company Number: US-JNJFOC-20080102137

PATIENT
  Sex: Female
  Weight: 35.2 kg

DRUGS (10)
  1. INFLIXIMAB [Suspect]
     Indication: INFLAMMATORY BOWEL DISEASE
     Route: 042
     Dates: start: 20071212
  2. INFLIXIMAB [Suspect]
     Route: 042
     Dates: start: 20070426
  3. INFLIXIMAB [Suspect]
     Route: 042
     Dates: start: 20071205
  4. MERCAPTOPURINE [Concomitant]
  5. INFLIXIMAB [Suspect]
     Indication: CROHN'S DISEASE
     Route: 042
     Dates: start: 20071205
  6. INFLIXIMAB [Suspect]
     Route: 042
     Dates: start: 20071212
  7. INFLIXIMAB [Suspect]
     Dosage: 10TH INFUSION
     Route: 042
     Dates: start: 20090212
  8. INFLIXIMAB [Suspect]
     Route: 042
     Dates: start: 20070426
  9. INFLIXIMAB [Suspect]
     Dosage: 10TH INFUSION
     Route: 042
     Dates: start: 20090212
  10. MESALAMINE [Concomitant]

REACTIONS (3)
  - CROHN'S DISEASE [None]
  - FISTULA [None]
  - CONSTIPATION [None]
